FAERS Safety Report 18045922 (Version 1)
Quarter: 2020Q3

REPORT INFORMATION
  Report Type: Not Available
  Country: GB (occurrence: GB)
  Receive Date: 20200720
  Receipt Date: 20200720
  Transmission Date: 20201103
  Serious: No
  Sender: FDA-Public Use
  Company Number: GB-LEXICON PHARMACEUTICALS, INC-20-1606-00560

PATIENT
  Sex: Female

DRUGS (1)
  1. XERMELO [Suspect]
     Active Substance: TELOTRISTAT ETHYL
     Indication: CARCINOID SYNDROME
     Route: 065

REACTIONS (1)
  - Off label use [Unknown]
